FAERS Safety Report 8915406 (Version 5)
Quarter: 2013Q1

REPORT INFORMATION
  Report Type: Spontaneous
  Country: US (occurrence: US)
  Receive Date: 20121119
  Receipt Date: 20130107
  Transmission Date: 20140127
  Serious: Yes (Hospitalization, Other)
  Sender: FDA-Public Use
  Company Number: US-PFIZER INC-2012287060

PATIENT
  Age: 55 Year
  Sex: Female
  Weight: 53.52 kg

DRUGS (2)
  1. NICOTROL INHALER [Suspect]
     Indication: SMOKING CESSATION THERAPY
     Dosage: 4 MG, 2X/DAY
     Route: 055
     Dates: start: 200901
  2. NICOTROL INHALER [Suspect]
     Dosage: UNK, DAILY
     Route: 055
     Dates: start: 20120319

REACTIONS (4)
  - Pneumonia [Recovered/Resolved]
  - Lung disorder [Unknown]
  - Product quality issue [Unknown]
  - Drug ineffective [Unknown]
